FAERS Safety Report 11054796 (Version 2)
Quarter: 2015Q2

REPORT INFORMATION
  Report Type: Spontaneous
  Country: BR (occurrence: BR)
  Receive Date: 20150422
  Receipt Date: 20150615
  Transmission Date: 20150821
  Serious: No
  Sender: FDA-Public Use
  Company Number: BR-PFIZER INC-2015105582

PATIENT
  Age: 80 Year
  Sex: Female

DRUGS (3)
  1. SYSTANE UL [Concomitant]
     Dosage: UNK
     Dates: start: 2014
  2. GLAUB [Concomitant]
     Dosage: UNK
     Dates: start: 2013
  3. XALATAN [Suspect]
     Active Substance: LATANOPROST
     Indication: GLAUCOMA
     Dosage: ONE DROP IN EACH EYE, AT NIGHT
     Route: 047
     Dates: start: 2013

REACTIONS (1)
  - Visual acuity reduced [Not Recovered/Not Resolved]

NARRATIVE: CASE EVENT DATE: 2013
